FAERS Safety Report 18025455 (Version 2)
Quarter: 2020Q3

REPORT INFORMATION
  Report Type: Spontaneous
  Country: US (occurrence: US)
  Receive Date: 20200715
  Receipt Date: 20200716
  Transmission Date: 20201103
  Serious: No
  Sender: FDA-Public Use
  Company Number: US-SA-2020SA177377

PATIENT

DRUGS (2)
  1. TOUJEO [Suspect]
     Active Substance: INSULIN GLARGINE
     Dosage: 100 IU, QD
     Route: 065
  2. TOUJEO [Suspect]
     Active Substance: INSULIN GLARGINE
     Dosage: 110 IU, QD (IN THE MORNING)
     Route: 065

REACTIONS (3)
  - Eye swelling [Unknown]
  - Eye contusion [Unknown]
  - Fall [Unknown]

NARRATIVE: CASE EVENT DATE: 202007
